FAERS Safety Report 9582178 (Version 1)
Quarter: 2013Q4

REPORT INFORMATION
  Report Type: Spontaneous
  Country: US (occurrence: US)
  Receive Date: 20131002
  Receipt Date: 20131002
  Transmission Date: 20140711
  Serious: No
  Sender: FDA-Public Use
  Company Number: US-AMGEN-USASP2013039007

PATIENT
  Age: 58 Year
  Sex: Male
  Weight: 86.17 kg

DRUGS (15)
  1. ENBREL [Suspect]
     Indication: PRODUCT USED FOR UNKNOWN INDICATION
     Dosage: 50 MG, QWK
     Route: 058
  2. AGGRENOX [Concomitant]
     Dosage: 25-200 MG, UNK
  3. SULFAZINE [Concomitant]
     Dosage: 500 MG, UNK
  4. FOLIC ACID [Concomitant]
     Dosage: UNK
  5. PROTONIX [Concomitant]
     Dosage: 20 MG, UNK
  6. MOBIC [Concomitant]
     Dosage: 15 MG, UNK
  7. ALLOPURINOL [Concomitant]
     Dosage: 500 MG, UNK
  8. PRAVACHOL [Concomitant]
     Dosage: 40 MG, UNK
  9. CARDIZEM LA [Concomitant]
     Dosage: 120 MG, UNK
  10. CLARINEX                           /01202601/ [Concomitant]
     Dosage: 5 MG, UNK
  11. PREDNISONE [Concomitant]
     Dosage: 10 MG, UNK
  12. FISH OIL [Concomitant]
     Dosage: UNK
  13. HYDROCODONE/HOMATROP [Concomitant]
     Dosage: UNK
  14. NASONEX [Concomitant]
     Dosage: 50 MUG/AC, UNK
  15. CLEANSE AND TREAT [Concomitant]
     Dosage: UNK

REACTIONS (1)
  - Therapeutic response decreased [Unknown]
